FAERS Safety Report 16646327 (Version 1)
Quarter: 2019Q3

REPORT INFORMATION
  Report Type: Spontaneous
  Country: RO (occurrence: RO)
  Receive Date: 20190730
  Receipt Date: 20190730
  Transmission Date: 20191004
  Serious: Yes (Death)
  Sender: FDA-Public Use
  Company Number: RO-ROCHE-2359242

PATIENT
  Age: 69 Year
  Sex: Male

DRUGS (7)
  1. MABTHERA [Suspect]
     Active Substance: RITUXIMAB
     Indication: MANTLE CELL LYMPHOMA
     Route: 065
  2. CYCLOPHOSPHAMIDE. [Concomitant]
     Active Substance: CYCLOPHOSPHAMIDE
     Indication: MANTLE CELL LYMPHOMA
     Route: 065
  3. DOXORUBICIN [Concomitant]
     Active Substance: DOXORUBICIN
     Indication: MANTLE CELL LYMPHOMA
  4. OXALIPLATIN. [Concomitant]
     Active Substance: OXALIPLATIN
  5. PREDNISOLONE. [Concomitant]
     Active Substance: PREDNISOLONE
     Indication: MANTLE CELL LYMPHOMA
  6. GEMCITABINE. [Concomitant]
     Active Substance: GEMCITABINE
     Indication: MANTLE CELL LYMPHOMA
  7. GEMCITABINE. [Concomitant]
     Active Substance: GEMCITABINE

REACTIONS (2)
  - Off label use [Unknown]
  - Disease progression [Fatal]
